FAERS Safety Report 7979722-1 (Version None)
Quarter: 2011Q4

REPORT INFORMATION
  Report Type: 
  Country: None (occurrence: None)
  Receive Date: 20111214
  Receipt Date: 20111202
  Transmission Date: 20120403
  Serious: Yes (Other)
  Sender: FDA-Public Use
  Company Number: US-JNJFOC-20111202048

PATIENT
  Sex: Male
  Weight: 72.58 kg

DRUGS (3)
  1. INVEGA [Suspect]
     Route: 048
     Dates: start: 20110101, end: 20111101
  2. FLUOXETINE [Concomitant]
     Indication: DEPRESSION
     Route: 048
  3. INVEGA [Suspect]
     Indication: SCHIZOPHRENIA, PARANOID TYPE
     Dosage: 6 MG AND 3 MG
     Route: 048
     Dates: start: 20111101

REACTIONS (6)
  - BIPOLAR DISORDER [None]
  - TREMOR [None]
  - NERVOUSNESS [None]
  - FATIGUE [None]
  - FEAR [None]
  - INDIFFERENCE [None]
